FAERS Safety Report 13582589 (Version 1)
Quarter: 2017Q2

REPORT INFORMATION
  Report Type: Spontaneous
  Country: US (occurrence: US)
  Receive Date: 20170525
  Receipt Date: 20170525
  Transmission Date: 20170830
  Serious: Yes (Other)
  Sender: FDA-Public Use
  Company Number: US-TEVA-772063USA

PATIENT
  Age: 86 Year
  Sex: Female

DRUGS (1)
  1. MICONAZOLE. [Suspect]
     Active Substance: MICONAZOLE
     Indication: RASH
     Route: 061
     Dates: start: 20170515

REACTIONS (4)
  - Drug ineffective [Unknown]
  - Suicidal ideation [Unknown]
  - Crying [Unknown]
  - Skin burning sensation [Unknown]

NARRATIVE: CASE EVENT DATE: 20170515
